FAERS Safety Report 5155365-2 (Version None)
Quarter: 2006Q4

REPORT INFORMATION
  Report Type: 
  Country: None (occurrence: None)
  Receive Date: 20061114
  Receipt Date: 20061107
  Transmission Date: 20070319
  Serious: Yes (Life-Threatening, Hospitalization, Other)
  Sender: FDA-Public Use
  Company Number: 2006SP002599

PATIENT
  Age: 59 Year
  Sex: Female
  Weight: 61.6892 kg

DRUGS (9)
  1. TEMODAR [Suspect]
     Indication: ANAPLASTIC ASTROCYTOMA
     Dosage: 120 MG; PO
     Route: 048
     Dates: start: 20060808, end: 20060908
  2. KEPPRA [Suspect]
  3. RADIATION [Concomitant]
  4. PEPCID [Concomitant]
  5. TYLENOL EXTRA STRENGTH [Concomitant]
  6. MULTI-VITAMIN [Concomitant]
  7. ZESTORETIC [Concomitant]
  8. CALCIUM [Concomitant]
  9. DEXAMETHASONE [Concomitant]

REACTIONS (2)
  - FEBRILE NEUTROPENIA [None]
  - PANCYTOPENIA [None]
